FAERS Safety Report 7484122-7 (Version None)
Quarter: 2011Q2

REPORT INFORMATION
  Report Type: 
  Country: None (occurrence: None)
  Receive Date: 20110517
  Receipt Date: 20080123
  Transmission Date: 20111010
  Serious: Yes (Death, Disabling, Other)
  Sender: FDA-Public Use
  Company Number: US-BAYER-200811996NA

PATIENT
  Age: 70 Year
  Sex: Male
  Weight: 93 kg

DRUGS (13)
  1. TRASYLOL [Suspect]
     Indication: CORONARY ARTERY BYPASS
     Dosage: 200 PUMP PRIME DOSE
     Route: 042
     Dates: start: 20060116
  2. TRASYLOL [Suspect]
     Dosage: UNK
     Route: 042
     Dates: start: 20060118
  3. ALLOPURINOL [Concomitant]
     Dosage: 300MG
     Dates: start: 20010101
  4. LIPITOR [Concomitant]
     Dosage: 20MG DAILY
     Dates: start: 19980101
  5. CEFAZOLIN [Concomitant]
     Dosage: 1 GM
     Dates: start: 20060116
  6. ALTACE [Concomitant]
     Dosage: 5MG
     Dates: start: 20010101
  7. PLAVIX [Concomitant]
     Dosage: 75MG DAILY
     Dates: start: 20010101
  8. HEPARIN [Concomitant]
     Dosage: 38,000UNITS
     Dates: start: 20060116
  9. ACETYLSALICYLIC ACID SRT [Concomitant]
     Dosage: 81MG DAILY
     Dates: start: 20050101
  10. ZINACEF [Concomitant]
     Dosage: 1.5GM
     Dates: start: 20060116
  11. FUROSEMIDE [Concomitant]
     Dosage: 20MG DAILY
     Dates: start: 20050101
  12. NITROGLYCERIN [Concomitant]
     Dosage: AS NEEDED
     Dates: start: 20050101
  13. TOPROL-XL [Concomitant]
     Dosage: 25MG DAILY
     Dates: start: 20050101

REACTIONS (11)
  - PAIN [None]
  - RENAL INJURY [None]
  - MULTI-ORGAN FAILURE [None]
  - RENAL FAILURE [None]
  - ACTIVITIES OF DAILY LIVING IMPAIRED [None]
  - DEATH [None]
  - ANHEDONIA [None]
  - EMOTIONAL DISTRESS [None]
  - INJURY [None]
  - ANXIETY [None]
  - MYOCARDIAL INFARCTION [None]
